FAERS Safety Report 9414031 (Version 1)
Quarter: 2013Q3

REPORT INFORMATION
  Report Type: Report from Study
  Country: CN (occurrence: CN)
  Receive Date: 20130723
  Receipt Date: 20130723
  Transmission Date: 20140515
  Serious: Yes (Death, Other)
  Sender: FDA-Public Use
  Company Number: CN-ROCHE-1251527

PATIENT
  Sex: 0

DRUGS (1)
  1. ALTEPLASE [Suspect]
     Indication: ISCHAEMIC STROKE
     Dosage: {55 KG FOR 0.90 MG/KG; 55 TO 67 KG FOR 0.75 TO 0.90 MG/KG; AND }67 KG FOR {0.75 MG/KG
     Route: 042

REACTIONS (2)
  - Death [Fatal]
  - Cerebral haemorrhage [Unknown]
